FAERS Safety Report 5312315-3 (Version None)
Quarter: 2007Q2

REPORT INFORMATION
  Report Type: 
  Country: None (occurrence: None)
  Receive Date: 20070430
  Receipt Date: 20061020
  Transmission Date: 20071010
  Serious: No
  Sender: FDA-Public Use
  Company Number: 2006UW20330

PATIENT
  Age: 73 Year
  Sex: Female
  Weight: 67.1 kg

DRUGS (5)
  1. NEXIUM [Suspect]
     Indication: GASTROOESOPHAGEAL REFLUX DISEASE
     Route: 048
     Dates: start: 20040101
  2. BIAXIN [Interacting]
  3. SKELAXIN [Interacting]
     Indication: MUSCLE RELAXANT THERAPY
  4. BONIVA [Concomitant]
  5. PRAVACHOL [Concomitant]

REACTIONS (3)
  - BURNING SENSATION [None]
  - DRUG INTERACTION [None]
  - DYSPEPSIA [None]
